FAERS Safety Report 19543862 (Version 1)
Quarter: 2021Q3

REPORT INFORMATION
  Report Type: Spontaneous
  Country: NL (occurrence: NL)
  Receive Date: 20210713
  Receipt Date: 20210713
  Transmission Date: 20211014
  Serious: Yes (Hospitalization)
  Sender: FDA-Public Use
  Company Number: NL-MYLANLABS-2021M1040814

PATIENT
  Sex: Female
  Weight: 78 kg

DRUGS (5)
  1. SIMVASTATINE A [Concomitant]
     Dosage: 20 MILLIGRAM, FILM?COATED TABLET
  2. AMLODIPINE [Concomitant]
     Active Substance: AMLODIPINE BESYLATE
     Dosage: 10 MILLIGRAM
  3. ASCAL CARDIO [Concomitant]
     Active Substance: CARBASPIRIN
     Dosage: SACHET (POWDER), 100 MG (MILLIGRAMS)
  4. LISINOPRIL. [Suspect]
     Active Substance: LISINOPRIL
     Indication: HYPERTENSION
     Dosage: 5 MILLIGRAM, QD (1D1T)
     Dates: start: 20201209, end: 20210101
  5. COLECALCIFEROL [Concomitant]
     Active Substance: CHOLECALCIFEROL
     Dosage: CAPSULE, 25000 UNITS

REACTIONS (1)
  - Dyspnoea [Recovering/Resolving]
